FAERS Safety Report 16559997 (Version 1)
Quarter: 2019Q3

REPORT INFORMATION
  Report Type: Spontaneous
  Country: US (occurrence: US)
  Receive Date: 20190711
  Receipt Date: 20190711
  Transmission Date: 20191004
  Serious: Yes (Death)
  Sender: FDA-Public Use
  Company Number: US-AGG-01-2019-1022

PATIENT

DRUGS (1)
  1. AGGRASTAT [Suspect]
     Active Substance: TIROFIBAN HYDROCHLORIDE
     Dosage: AGGRASTAT HDB (HIGH DOSE BOLUS)
     Route: 040

REACTIONS (1)
  - Pulmonary alveolar haemorrhage [Fatal]
